FAERS Safety Report 22258955 (Version 3)
Quarter: 2023Q4

REPORT INFORMATION
  Report Type: Spontaneous
  Country: CA (occurrence: CA)
  Receive Date: 20230427
  Receipt Date: 20231226
  Transmission Date: 20240110
  Serious: Yes (Other)
  Sender: FDA-Public Use
  Company Number: CA-PFIZER INC-202300166691

PATIENT
  Age: 33 Year
  Sex: Female

DRUGS (1)
  1. ABRILADA [Suspect]
     Active Substance: ADALIMUMAB-AFZB
     Indication: Ankylosing spondylitis
     Dosage: 40 MG, EVERY 2 WEEKS
     Route: 058
     Dates: start: 20220518

REACTIONS (4)
  - Ankylosing spondylitis [Not Recovered/Not Resolved]
  - Inappropriate schedule of product administration [Unknown]
  - Maternal exposure timing unspecified [Unknown]
  - Pain [Unknown]

NARRATIVE: CASE EVENT DATE: 20230101
